APPROVED DRUG PRODUCT: GEMFIBROZIL
Active Ingredient: GEMFIBROZIL
Strength: 600MG
Dosage Form/Route: TABLET;ORAL
Application: A074452 | Product #001
Applicant: PHARMOBEDIENT CONSULTING LLC
Approved: Feb 16, 1995 | RLD: No | RS: No | Type: DISCN